FAERS Safety Report 8337054-6 (Version None)
Quarter: 2012Q2

REPORT INFORMATION
  Report Type: 
  Country: None (occurrence: None)
  Receive Date: 20120504
  Receipt Date: 20120426
  Transmission Date: 20120825
  Serious: Yes (Other)
  Sender: FDA-Public Use
  Company Number: JP-VERTEX PHARMACEUTICALS INC.-AE-2012-003530

PATIENT
  Age: 53 Year
  Sex: Male

DRUGS (15)
  1. TELAVIC (TELAPREVIR) [Suspect]
     Indication: HEPATITIS C
     Route: 048
     Dates: start: 20120118, end: 20120120
  2. REBETOL [Concomitant]
     Route: 048
     Dates: start: 20120312, end: 20120411
  3. FEROTYM [Concomitant]
     Route: 048
  4. TELAVIC (TELAPREVIR) [Suspect]
     Route: 048
     Dates: start: 20120123
  5. REBETOL [Concomitant]
     Route: 048
     Dates: start: 20120228, end: 20120306
  6. REBETOL [Concomitant]
     Route: 048
     Dates: start: 20120412
  7. CLARITIN REDITABS [Concomitant]
     Route: 048
  8. LIVALO [Concomitant]
     Route: 048
  9. REBETOL [Concomitant]
     Route: 048
     Dates: start: 20120213, end: 20120219
  10. REBETOL [Concomitant]
     Route: 048
     Dates: start: 20120307, end: 20120311
  11. EPADEL S [Concomitant]
     Route: 048
  12. LIVALO [Concomitant]
     Route: 048
  13. PEG-INTRON [Concomitant]
     Indication: HEPATITIS C
     Route: 058
  14. REBETOL [Concomitant]
     Indication: HEPATITIS C
     Route: 048
     Dates: start: 20120118, end: 20120212
  15. REBETOL [Concomitant]
     Route: 048
     Dates: start: 20120220, end: 20120227

REACTIONS (2)
  - ANAEMIA [None]
  - RENAL DISORDER [None]
